FAERS Safety Report 7392735-6 (Version None)
Quarter: 2011Q2

REPORT INFORMATION
  Report Type: 
  Country: None (occurrence: None)
  Receive Date: 20110404
  Receipt Date: 20110404
  Transmission Date: 20111010
  Serious: Yes (Hospitalization)
  Sender: FDA-Public Use
  Company Number: IT-JNJFOC-2010019327

PATIENT
  Age: 23 Month
  Sex: Male

DRUGS (1)
  1. OXYMETAZOLINE HCL [Suspect]
     Indication: RHINORRHOEA
     Dosage: DAILY DOSE TEXT: ^A GENEROUS AMOUNT^
     Route: 045

REACTIONS (2)
  - WRONG DRUG ADMINISTERED [None]
  - TOXICITY TO VARIOUS AGENTS [None]
